FAERS Safety Report 4719969-0 (Version None)
Quarter: 2005Q3

REPORT INFORMATION
  Report Type: 
  Country: None (occurrence: None)
  Receive Date: 20050721
  Receipt Date: 20050217
  Transmission Date: 20060218
  Serious: No
  Sender: FDA-Public Use
  Company Number: US-GLAXOSMITHKLINE-A0546052A

PATIENT
  Age: 72 Year
  Sex: Male

DRUGS (8)
  1. AVANDIA [Suspect]
     Dosage: 4MG PER DAY
     Route: 048
     Dates: start: 20040101
  2. LISINOPRIL [Concomitant]
  3. MAXZIDE [Concomitant]
  4. VITAMIN E [Concomitant]
  5. ASCORBIC ACID [Concomitant]
  6. GLUCOSAMINE SULFATE [Concomitant]
  7. CHROMIUM PICOLINATE [Concomitant]
  8. CHONDROITIN [Concomitant]

REACTIONS (1)
  - DRUG INEFFECTIVE [None]
